FAERS Safety Report 7064744-8 (Version None)
Quarter: 2010Q4

REPORT INFORMATION
  Report Type: 
  Country: None (occurrence: None)
  Receive Date: 20101027
  Receipt Date: 19760610
  Transmission Date: 20110411
  Serious: Yes (Death)
  Sender: FDA-Public Use
  Company Number: GB-ROCHE-760415527001

PATIENT
  Age: 62 Year
  Sex: Male
  Weight: 24.9 kg

DRUGS (4)
  1. VALIUM [Suspect]
     Indication: LIGHT ANAESTHESIA
     Route: 042
     Dates: start: 19760401, end: 19760401
  2. LIDOCAINE [Concomitant]
     Route: 048
     Dates: start: 19760401, end: 19760401
  3. GLYCERYL TRINITRATE [Concomitant]
     Route: 065
  4. WHOLE BLOOD [Concomitant]
     Route: 042
     Dates: start: 19760401, end: 19760401

REACTIONS (2)
  - HAEMATEMESIS [None]
  - URTICARIA [None]
